FAERS Safety Report 24631569 (Version 1)
Quarter: 2024Q4

REPORT INFORMATION
  Report Type: Spontaneous
  Country: UA (occurrence: UA)
  Receive Date: 20241118
  Receipt Date: 20241118
  Transmission Date: 20250114
  Serious: Yes (Other)
  Sender: MYLAN
  Company Number: UA-MYLANLABS-2024M1102767

PATIENT
  Age: 52 Year
  Sex: Male

DRUGS (2)
  1. DOLUTEGRAVIR\LAMIVUDINE\TENOFOVIR DISOPROXIL FUMARATE [Suspect]
     Active Substance: DOLUTEGRAVIR\LAMIVUDINE\TENOFOVIR DISOPROXIL FUMARATE
     Indication: Acquired immunodeficiency syndrome
     Dosage: 1 DOSAGE FORM, QD
     Route: 048
     Dates: start: 20151203, end: 20241022
  2. DOLUTEGRAVIR\LAMIVUDINE\TENOFOVIR DISOPROXIL FUMARATE [Suspect]
     Active Substance: DOLUTEGRAVIR\LAMIVUDINE\TENOFOVIR DISOPROXIL FUMARATE
     Indication: HIV infection CDC Group IV subgroup D

REACTIONS (2)
  - Cachexia [Unknown]
  - Back pain [Unknown]

NARRATIVE: CASE EVENT DATE: 20240901
